FAERS Safety Report 13174514 (Version 1)
Quarter: 2017Q1

REPORT INFORMATION
  Report Type: Spontaneous
  Country: FR (occurrence: FR)
  Receive Date: 20170201
  Receipt Date: 20170201
  Transmission Date: 20170428
  Serious: Yes (Other)
  Sender: FDA-Public Use
  Company Number: FR-PFIZER INC-2017039763

PATIENT
  Age: 69 Year
  Sex: Male

DRUGS (1)
  1. CELEBREX [Suspect]
     Active Substance: CELECOXIB
     Indication: MUSCULOSKELETAL DISORDER
     Dosage: UNK

REACTIONS (1)
  - Epilepsy [Unknown]

NARRATIVE: CASE EVENT DATE: 20170124
